FAERS Safety Report 9225469 (Version 1)
Quarter: 2013Q2

REPORT INFORMATION
  Report Type: Spontaneous
  Country: SE (occurrence: SE)
  Receive Date: 20130411
  Receipt Date: 20130411
  Transmission Date: 20140414
  Serious: Yes (Other)
  Sender: FDA-Public Use
  Company Number: SE-ASTRAZENECA-2013SE22510

PATIENT
  Age: 38 Year
  Sex: Female

DRUGS (1)
  1. QUETIAPIN (PROD UNSPECIFIED) [Suspect]
     Route: 048
     Dates: start: 20121229, end: 20121229

REACTIONS (2)
  - Toxicity to various agents [Unknown]
  - Tachycardia [Unknown]
